FAERS Safety Report 5909200-2 (Version None)
Quarter: 2008Q4

REPORT INFORMATION
  Report Type: 
  Country: None (occurrence: None)
  Receive Date: 20081006
  Receipt Date: 20080925
  Transmission Date: 20090506
  Serious: Yes (Other)
  Sender: FDA-Public Use
  Company Number: PHBS2008AU05110

PATIENT
  Age: 57 Year
  Sex: Male

DRUGS (1)
  1. ZOLEDRONIC ACID [Suspect]

REACTIONS (8)
  - CONJUNCTIVAL OEDEMA [None]
  - CORNEAL EROSION [None]
  - EXOPHTHALMOS [None]
  - EYE MOVEMENT DISORDER [None]
  - EYE PAIN [None]
  - ORBITAL OEDEMA [None]
  - PUPILLARY DISORDER [None]
  - VITREOUS DISORDER [None]
